FAERS Safety Report 7386278-3 (Version None)
Quarter: 2011Q1

REPORT INFORMATION
  Report Type: 
  Country: None (occurrence: None)
  Receive Date: 20110331
  Receipt Date: 20110316
  Transmission Date: 20110831
  Serious: Yes (Other)
  Sender: FDA-Public Use
  Company Number: PHHY2011US06019

PATIENT
  Sex: Female
  Weight: 68.027 kg

DRUGS (14)
  1. CENTRUM [Concomitant]
  2. PRILOSEC [Concomitant]
  3. CLOBETASOL PROPIONATE [Concomitant]
  4. GLEEVEC [Suspect]
     Indication: NEOPLASM
     Dosage: 400 MG, QD
     Route: 048
     Dates: start: 20101123
  5. AUGMENTIN [Concomitant]
     Dosage: 875 MG, BID WITH FOOD
     Route: 048
  6. FLUTICASONE PROPIONATE [Concomitant]
     Dosage: 50 MG, PRN
  7. IRON SUPPLEMENTS [Concomitant]
  8. EVISTA [Concomitant]
  9. AMLODIPINE BESYLATE [Concomitant]
     Dosage: 5 MG, QD
  10. CALTRATE  WITH VIT D [Concomitant]
  11. ZOLOFT [Concomitant]
     Dosage: 25 MG, DAILY
     Route: 048
  12. HYDROCHLOROTHIAZIDE [Concomitant]
     Dosage: 12.5 MG, QD
     Dates: end: 20100820
  13. CLARINEX [Concomitant]
     Dosage: 5 MG, QD
  14. METFORMIN HCL [Concomitant]
     Dosage: 500 MG, TID ONE IN MORNING AND 2 IN EVENING

REACTIONS (7)
  - WHEEZING [None]
  - SPLENIC LESION [None]
  - HAEMOPTYSIS [None]
  - RENAL INJURY [None]
  - HEPATIC ENZYME INCREASED [None]
  - FAECES DISCOLOURED [None]
  - UPPER RESPIRATORY TRACT INFECTION [None]
